FAERS Safety Report 7580381-0 (Version None)
Quarter: 2011Q2

REPORT INFORMATION
  Report Type: 
  Country: None (occurrence: None)
  Receive Date: 20110629
  Receipt Date: 20110625
  Transmission Date: 20111010
  Serious: Yes (Other)
  Sender: FDA-Public Use
  Company Number: A0932927A

PATIENT
  Age: 62 Year
  Sex: Male

DRUGS (1)
  1. NICODERM CQ [Suspect]
     Dosage: 21MG UNKNOWN
     Route: 062
     Dates: start: 20110501

REACTIONS (3)
  - LOSS OF CONSCIOUSNESS [None]
  - NAUSEA [None]
  - DIZZINESS [None]
